FAERS Safety Report 8000999-0 (Version None)
Quarter: 2011Q4

REPORT INFORMATION
  Report Type: 
  Country: None (occurrence: None)
  Receive Date: 20111222
  Receipt Date: 20110310
  Transmission Date: 20120403
  Serious: No
  Sender: FDA-Public Use
  Company Number: US-GLAXOSMITHKLINE-A0917553A

PATIENT
  Age: 76 Year
  Sex: Female

DRUGS (10)
  1. LISINOPRIL [Concomitant]
  2. FLUTICASONE PROPIONATE [Suspect]
     Indication: CHRONIC OBSTRUCTIVE PULMONARY DISEASE
     Dosage: 2SPR PER DAY
     Route: 045
     Dates: start: 20060101
  3. ALLEGRA [Concomitant]
  4. VITAMIN [Concomitant]
  5. FLONASE [Suspect]
     Indication: CHRONIC OBSTRUCTIVE PULMONARY DISEASE
     Dosage: 2SPR PER DAY
     Route: 045
     Dates: start: 20010101, end: 20060101
  6. MULTI-VITAMIN [Concomitant]
  7. ASPIRIN [Concomitant]
  8. ACIPHEX [Concomitant]
  9. LIPITOR [Concomitant]
  10. FISH OIL [Concomitant]

REACTIONS (3)
  - RHINALGIA [None]
  - DRUG INEFFECTIVE [None]
  - EPISTAXIS [None]
